FAERS Safety Report 10220052 (Version 1)
Quarter: 2014Q1

REPORT INFORMATION
  Report Type: Spontaneous
  Country: US (occurrence: None)
  Receive Date: 20140306
  Receipt Date: 20140306
  Transmission Date: 20141002
  Serious: Yes (Other)
  Sender: FDA-Public Use
  Company Number: 163-21880-13082273

PATIENT
  Age: 53 Year
  Sex: Female
  Weight: 55.34 kg

DRUGS (13)
  1. REVLIMID (LENALIDOMIDE) (25 MILLIGRAM, CAPSULES) [Suspect]
     Indication: PLASMA CELL MYELOMA
     Route: 048
     Dates: start: 201002
  2. LEVOTHYROXINE (LEVOTHYROXINE) (UNKNOWN) [Concomitant]
  3. NEXIUM (ESOMEPRAZOLE) (UNKNOWN) [Concomitant]
  4. ZOCOR (SIMVASTATIN) (TABLETS) [Concomitant]
  5. PHENERGAN (PROMETHAZINE HYDROCHLORIDE) (TABLETS) [Concomitant]
  6. MEGACE (MEGESTROL ACETATE) (TABLETS) [Concomitant]
  7. GABAPENTIN (GABAPENTIN) (UNKNOWN) (GABAPENTIN) [Concomitant]
  8. VALIUM (DIAZEPAM) (TABLETS) [Concomitant]
  9. BACLOFEN (BACLOFEN) (TABLETS) [Concomitant]
  10. FIORICET (AXOTAL (OLD FORM)) (TABLETS) [Concomitant]
  11. OXYCODONE HCL (OXYCODONE HYDROCHLORIDE) (TABLETS) [Concomitant]
  12. CYANOCOBALAMIN (CYANOCOBALAMIN) (INJECTION) [Concomitant]
  13. COMBIVENT (COMBIVENT) (INJECTION) [Concomitant]

REACTIONS (1)
  - Arthropod bite [None]
